FAERS Safety Report 8142365-3 (Version None)
Quarter: 2012Q1

REPORT INFORMATION
  Report Type: 
  Country: None (occurrence: None)
  Receive Date: 20120216
  Receipt Date: 20120208
  Transmission Date: 20120608
  Serious: Yes (Hospitalization, Other)
  Sender: FDA-Public Use
  Company Number: PHHY2012BR011633

PATIENT
  Sex: Female

DRUGS (2)
  1. EXELON [Suspect]
     Dosage: 9.5 MG, (18MG/10CM)
     Route: 062
  2. EXELON [Suspect]
     Indication: MEMORY IMPAIRMENT
     Dosage: 4.6 MG, (9MG/5CM2 )
     Route: 062

REACTIONS (9)
  - DYSPHEMIA [None]
  - BLOOD GLUCOSE ABNORMAL [None]
  - STRESS [None]
  - SUICIDAL IDEATION [None]
  - HEART RATE IRREGULAR [None]
  - CHOLELITHIASIS [None]
  - BILIARY COLIC [None]
  - DEPRESSION [None]
  - TREMOR [None]
